FAERS Safety Report 10728801 (Version 2)
Quarter: 2015Q1

REPORT INFORMATION
  Report Type: Spontaneous
  Country: GB (occurrence: GB)
  Receive Date: 20150122
  Receipt Date: 20150130
  Transmission Date: 20150721
  Serious: Yes (Hospitalization)
  Sender: FDA-Public Use
  Company Number: PHFR2015GB000810

PATIENT
  Age: 35 Year
  Sex: Male

DRUGS (1)
  1. CLOZARIL [Suspect]
     Active Substance: CLOZAPINE
     Indication: SCHIZOPHRENIA
     Route: 048
     Dates: start: 20141128

REACTIONS (5)
  - White blood cell count increased [Not Recovered/Not Resolved]
  - Urinary tract infection [Unknown]
  - Neutrophil count increased [Not Recovered/Not Resolved]
  - Vomiting [Unknown]
  - Renal impairment [Unknown]

NARRATIVE: CASE EVENT DATE: 20150115
